FAERS Safety Report 10930844 (Version 1)
Quarter: 2015Q1

REPORT INFORMATION
  Report Type: Spontaneous
  Country: US (occurrence: US)
  Receive Date: 20150319
  Receipt Date: 20150319
  Transmission Date: 20150721
  Serious: No
  Sender: FDA-Public Use
  Company Number: US-BAUSCH-SYM-2014-19354

PATIENT
  Age: 44 Year
  Sex: Female
  Weight: 56.69 kg

DRUGS (2)
  1. NEOSPORIN [Concomitant]
     Active Substance: BACITRACIN ZINC\NEOMYCIN SULFATE\POLYMYXIN B SULFATE
     Indication: PRODUCT USED FOR UNKNOWN INDICATION
     Dates: start: 201403
  2. TRETINOIN CREAM 0.1% [Suspect]
     Active Substance: TRETINOIN
     Indication: SKIN HYPERPIGMENTATION
     Dosage: PEA SIZE AMOUNT, DAILY
     Route: 061
     Dates: start: 20140313, end: 20140322

REACTIONS (3)
  - Eye pruritus [Not Recovered/Not Resolved]
  - Erythema [Not Recovered/Not Resolved]
  - Pruritus [Not Recovered/Not Resolved]

NARRATIVE: CASE EVENT DATE: 20140313
